FAERS Safety Report 8862803 (Version 2)
Quarter: 2012Q4

REPORT INFORMATION
  Report Type: Report from Study
  Country: CA (occurrence: CA)
  Receive Date: 20121026
  Receipt Date: 20121105
  Transmission Date: 20130627
  Serious: Yes (Other)
  Sender: FDA-Public Use
  Company Number: CA-JNJFOC-20121014328

PATIENT
  Age: 53 None
  Sex: Female
  Weight: 56 kg

DRUGS (7)
  1. REMICADE [Suspect]
     Indication: COLITIS ULCERATIVE
     Dosage: loading dose
     Route: 042
     Dates: start: 20121011
  2. REMICADE [Suspect]
     Indication: COLITIS ULCERATIVE
     Dosage: loading dose 2
     Route: 042
     Dates: start: 20121025
  3. PREDNISONE [Concomitant]
     Route: 065
  4. IMURAN [Concomitant]
     Route: 065
  5. CIPRO [Concomitant]
     Route: 065
  6. FLAGYL [Concomitant]
     Route: 065
  7. ASACOL [Concomitant]
     Route: 065

REACTIONS (10)
  - Syncope [Unknown]
  - Tachycardia [Unknown]
  - Diarrhoea [Unknown]
  - Haematochezia [Unknown]
  - Hypotension [Unknown]
  - Pallor [Not Recovered/Not Resolved]
  - Fatigue [Unknown]
  - Body temperature increased [Recovering/Resolving]
  - Nausea [Unknown]
  - Vomiting [Unknown]
